FAERS Safety Report 9599326 (Version 2)
Quarter: 2013Q4

REPORT INFORMATION
  Report Type: Spontaneous
  Country: US (occurrence: US)
  Receive Date: 20131004
  Receipt Date: 20131004
  Transmission Date: 20140711
  Serious: No
  Sender: FDA-Public Use
  Company Number: US-AMGEN-USASP2013022867

PATIENT
  Age: 54 Year
  Sex: Female
  Weight: 97.05 kg

DRUGS (8)
  1. ENBREL [Suspect]
     Indication: RHEUMATOID ARTHRITIS
     Dosage: 50 MG, QWK
     Route: 058
     Dates: start: 201212
  2. AMBIEN CR [Concomitant]
     Indication: INSOMNIA
     Dosage: 12.5 MG, HS
     Route: 048
  3. BUPROPION [Concomitant]
     Indication: DEPRESSION
     Dosage: 150 MG, BID
     Route: 048
  4. CYCLOBENZAPRINE [Concomitant]
     Indication: BACK PAIN
     Dosage: 10 MG, TID, PRN
     Route: 048
  5. METHOTREXATE [Concomitant]
     Indication: RHEUMATOID ARTHRITIS
     Dosage: 12.5 MG, QWK
     Route: 048
  6. PROTONIX [Concomitant]
     Indication: REFLUX GASTRITIS
     Dosage: 40 MG, QD
     Route: 048
  7. PAXIL                              /00500401/ [Concomitant]
     Indication: DEPRESSION
     Dosage: 20 MG, QD
     Route: 048
  8. VALSARTAN HCT [Concomitant]
     Indication: HYPERTENSION
     Dosage: 100/125 DAILY
     Route: 048

REACTIONS (2)
  - Pain in extremity [Not Recovered/Not Resolved]
  - Injection site pain [Recovering/Resolving]
